FAERS Safety Report 7346925-9 (Version None)
Quarter: 2011Q1

REPORT INFORMATION
  Report Type: 
  Country: None (occurrence: None)
  Receive Date: 20110311
  Receipt Date: 20110303
  Transmission Date: 20110831
  Serious: Yes (Other)
  Sender: FDA-Public Use
  Company Number: NO-JNJFOC-20110301388

PATIENT
  Age: 42 Year
  Sex: Female

DRUGS (1)
  1. CONCERTA [Suspect]
     Indication: ATTENTION DEFICIT/HYPERACTIVITY DISORDER

REACTIONS (4)
  - RESTLESSNESS [None]
  - MOOD SWINGS [None]
  - INSOMNIA [None]
  - LOSS OF CONSCIOUSNESS [None]
